FAERS Safety Report 6154192-7 (Version None)
Quarter: 2009Q2

REPORT INFORMATION
  Report Type: 
  Country: None (occurrence: None)
  Receive Date: 20090414
  Receipt Date: 20071009
  Transmission Date: 20091009
  Serious: Yes (Other)
  Sender: FDA-Public Use
  Company Number: US-ASTRAZENECA-2006UW22248

PATIENT
  Age: 16789 Day
  Sex: Male
  Weight: 108.9 kg

DRUGS (16)
  1. SEROQUEL [Suspect]
     Indication: BIPOLAR DISORDER
     Route: 048
     Dates: start: 20000101, end: 20050101
  2. SEROQUEL [Suspect]
     Indication: DEPRESSION
     Route: 048
     Dates: start: 20000101, end: 20050101
  3. SEROQUEL [Suspect]
     Dosage: 25 - 500 MG
     Route: 048
     Dates: start: 20000606
  4. SEROQUEL [Suspect]
     Dosage: 25 - 500 MG
     Route: 048
     Dates: start: 20000606
  5. DEPAKOTE [Concomitant]
  6. RISPERDAL [Concomitant]
  7. WELLBUTRIN [Concomitant]
  8. ZYPREXA [Concomitant]
  9. VALIUM [Concomitant]
  10. LORAZEPAM [Concomitant]
  11. EFFEXOR [Concomitant]
  12. PRILOSEC [Concomitant]
  13. CLONAZEPAM [Concomitant]
  14. LITHIUM CARBONATE [Concomitant]
  15. CEPHALEXIN [Concomitant]
  16. METFORMIN HCL [Concomitant]
     Dates: start: 20061221

REACTIONS (11)
  - ACUTE PSYCHOSIS [None]
  - DIABETES MELLITUS [None]
  - DYSPEPSIA [None]
  - ERECTILE DYSFUNCTION [None]
  - GASTROOESOPHAGEAL REFLUX DISEASE [None]
  - GENITAL CANDIDIASIS [None]
  - HYPERLIPIDAEMIA [None]
  - JOINT INJURY [None]
  - LIBIDO DECREASED [None]
  - OBESITY [None]
  - ORGANIC ERECTILE DYSFUNCTION [None]
